FAERS Safety Report 5400148-9 (Version None)
Quarter: 2007Q3

REPORT INFORMATION
  Report Type: 
  Country: None (occurrence: None)
  Receive Date: 20070725
  Receipt Date: 20070618
  Transmission Date: 20080115
  Serious: Yes (Other)
  Sender: FDA-Public Use
  Company Number: 6034785

PATIENT
  Age: 19 Year
  Sex: Female

DRUGS (1)
  1. ISOTRETINOIN [Suspect]
     Indication: ACNE
     Dosage: 20 MG (20 MG, 1 IN 1 D)

REACTIONS (3)
  - CROHN'S DISEASE [None]
  - ENTEROCOLITIS [None]
  - WEIGHT DECREASED [None]
